FAERS Safety Report 8238230-3 (Version None)
Quarter: 2012Q1

REPORT INFORMATION
  Report Type: 
  Country: None (occurrence: None)
  Receive Date: 20120327
  Receipt Date: 20120326
  Transmission Date: 20120608
  Serious: Yes (Other)
  Sender: FDA-Public Use
  Company Number: PHFR2011IE006586

PATIENT
  Sex: Male

DRUGS (6)
  1. CLOZARIL [Suspect]
     Dosage: 200 MG,DAILY
     Route: 048
  2. VALPROIC ACID [Concomitant]
     Indication: EPILEPSY
     Dosage: 800 MG, UNK
  3. CLOZARIL [Suspect]
     Indication: SCHIZOPHRENIA, PARANOID TYPE
     Dosage: 250 MG, QD
     Route: 048
     Dates: start: 20090609
  4. ALBUTEROL [Concomitant]
     Dosage: 2 DF, PRN
  5. FLUTICASONE PROPIONATE/SALMETEROL [Concomitant]
     Dosage: 500 MG, BID
  6. PRAVASTATIN [Concomitant]
     Dosage: 10 MG, QD

REACTIONS (3)
  - GROIN ABSCESS [None]
  - ANTIPSYCHOTIC DRUG LEVEL BELOW THERAPEUTIC [None]
  - CONVULSION [None]
